FAERS Safety Report 8128239-2 (Version None)
Quarter: 2011Q4

REPORT INFORMATION
  Report Type: 
  Country: None (occurrence: None)
  Receive Date: 20111227
  Receipt Date: 20111128
  Transmission Date: 20120403
  Serious: No
  Sender: FDA-Public Use
  Company Number: PHHY2011US58807

PATIENT
  Age: 32 Year
  Sex: Female

DRUGS (5)
  1. ADDERALL 10 [Concomitant]
  2. ZOLOFT [Concomitant]
  3. KLONOPIN [Concomitant]
  4. GILENYA [Suspect]
     Indication: MULTIPLE SCLEROSIS
     Dosage: 0.5 MG, QD, ORAL, 0.5 MG, QOD, ORAL
     Route: 048
     Dates: start: 20110601
  5. GILENYA [Suspect]
     Indication: MULTIPLE SCLEROSIS
     Dosage: 0.5 MG, QD, ORAL, 0.5 MG, QOD, ORAL
     Route: 048
     Dates: start: 20111101

REACTIONS (4)
  - FATIGUE [None]
  - HEADACHE [None]
  - INCORRECT DOSE ADMINISTERED [None]
  - WHITE BLOOD CELL COUNT DECREASED [None]
